FAERS Safety Report 25218898 (Version 1)
Quarter: 2025Q2

REPORT INFORMATION
  Report Type: Spontaneous
  Country: DE (occurrence: DE)
  Receive Date: 20250421
  Receipt Date: 20250421
  Transmission Date: 20250716
  Serious: Yes (Other)
  Sender: HIKMA
  Company Number: DE-HIKMA PHARMACEUTICALS-DE-H14001-25-03251

PATIENT

DRUGS (9)
  1. BLEOMYCIN SULFATE [Suspect]
     Active Substance: BLEOMYCIN SULFATE
     Indication: Hodgkin^s disease
     Route: 064
     Dates: start: 202311, end: 202401
  2. DACARBAZINE [Suspect]
     Active Substance: DACARBAZINE
     Indication: Hodgkin^s disease
     Route: 064
     Dates: start: 202311, end: 202402
  3. DOXORUBICIN [Suspect]
     Active Substance: DOXORUBICIN
     Indication: Hodgkin^s disease
     Route: 064
     Dates: start: 202311, end: 202402
  4. VINBLASTINE SULFATE [Suspect]
     Active Substance: VINBLASTINE SULFATE
     Indication: Hodgkin^s disease
     Route: 064
     Dates: start: 202311, end: 202402
  5. DEXAMETHASONE [Concomitant]
     Active Substance: DEXAMETHASONE
     Indication: Hodgkin^s disease
     Route: 064
     Dates: start: 202310, end: 202402
  6. MCP [Concomitant]
     Active Substance: METOCLOPRAMIDE HYDROCHLORIDE
     Indication: Antiemetic supportive care
     Route: 064
  7. ONDANSETRON [Concomitant]
     Active Substance: ONDANSETRON
     Indication: Prophylaxis of nausea and vomiting
     Route: 064
     Dates: start: 202311, end: 202402
  8. CLEMASTINE [Concomitant]
     Active Substance: CLEMASTINE
     Indication: Anaphylaxis prophylaxis
     Route: 064
     Dates: start: 202311, end: 202401
  9. DIMENHYDRINATE [Concomitant]
     Active Substance: DIMENHYDRINATE
     Indication: Prophylaxis of nausea and vomiting
     Route: 064
     Dates: start: 202311, end: 202402

REACTIONS (6)
  - Foetal-maternal haemorrhage [Recovered/Resolved]
  - Premature baby [Unknown]
  - Foetal growth restriction [Unknown]
  - Foetal hypokinesia [Unknown]
  - Foetal heart rate deceleration abnormality [Unknown]
  - Foetal exposure during pregnancy [Unknown]
